FAERS Safety Report 11110258 (Version 1)
Quarter: 2015Q2

REPORT INFORMATION
  Report Type: Spontaneous
  Country: JP (occurrence: JP)
  Receive Date: 20150513
  Receipt Date: 20150513
  Transmission Date: 20150821
  Serious: Yes (Other)
  Sender: FDA-Public Use
  Company Number: JP-GLAXOSMITHKLINE-JP2015JPN063328

PATIENT
  Sex: Male

DRUGS (2)
  1. ALLERMIST [Suspect]
     Active Substance: FLUTICASONE FUROATE
     Dosage: UNK
     Route: 045
     Dates: start: 20150413
  2. NICEPIE [Concomitant]

REACTIONS (3)
  - Rhinalgia [Unknown]
  - Deafness unilateral [Unknown]
  - Epistaxis [Unknown]

NARRATIVE: CASE EVENT DATE: 201504
